FAERS Safety Report 23218697 (Version 1)
Quarter: 2023Q4

REPORT INFORMATION
  Report Type: Spontaneous
  Country: US (occurrence: None)
  Receive Date: 20231122
  Receipt Date: 20231122
  Transmission Date: 20240110
  Serious: Yes (Other)
  Sender: FDA-Public Use
  Company Number: None

PATIENT
  Sex: Female

DRUGS (8)
  1. PROGRAF [Suspect]
     Active Substance: TACROLIMUS
     Indication: Renal transplant
     Dosage: FREQUENCY : EVERY 12 HOURS;?
     Route: 048
     Dates: start: 20200206
  2. PROGRAF [Suspect]
     Active Substance: TACROLIMUS
     Dosage: FREQUENCY : EVERY 12 HOURS;?
     Route: 048
  3. CELLCEPT [Concomitant]
     Active Substance: MYCOPHENOLATE MOFETIL
  4. CLA [Concomitant]
  5. FISH OIL [Concomitant]
     Active Substance: FISH OIL
  6. FORSKOLIN POW [Concomitant]
  7. MEGA MULTI TAB WOMEN [Concomitant]
  8. ZINC [Concomitant]
     Active Substance: PYRITHIONE ZINC\ZINC\ZINC CHLORIDE

REACTIONS (1)
  - Gout [None]
